FAERS Safety Report 4340266-X (Version None)
Quarter: 2004Q2

REPORT INFORMATION
  Report Type: 
  Country: None (occurrence: None)
  Receive Date: 20040412
  Receipt Date: 20040402
  Transmission Date: 20050107
  Serious: Yes (Hospitalization, Other)
  Sender: FDA-Public Use
  Company Number: HQ9726902JAN2002

PATIENT
  Age: 24 Year
  Sex: Female
  Weight: 66 kg

DRUGS (3)
  1. ETANERCEPT (ETANERCEPT, INJECTION) [Suspect]
     Indication: RHEUMATOID ARTHRITIS
     Dosage: SEE IMAGE
     Route: 058
     Dates: start: 20010612, end: 20011224
  2. ETANERCEPT (ETANERCEPT, INJECTION) [Suspect]
     Indication: RHEUMATOID ARTHRITIS
     Dosage: SEE IMAGE
     Route: 058
     Dates: start: 20011231
  3. SULFASALAZINE [Suspect]
     Indication: RHEUMATOID ARTHRITIS
     Dosage: 2-3 GRAMS AS PER PROTOCOL, ORAL
     Route: 048
     Dates: start: 20010612, end: 20011224

REACTIONS (3)
  - ACUTE TONSILLITIS [None]
  - PERITONSILLAR ABSCESS [None]
  - PHARYNGOLARYNGEAL PAIN [None]
